FAERS Safety Report 15308579 (Version 1)
Quarter: 2018Q3

REPORT INFORMATION
  Report Type: Spontaneous
  Country: US (occurrence: US)
  Receive Date: 20180822
  Receipt Date: 20180822
  Transmission Date: 20181010
  Serious: Yes (Hospitalization, Other)
  Sender: FDA-Public Use
  Company Number: US-PFIZER INC-2013302993

PATIENT
  Age: 66 Year
  Sex: Female

DRUGS (2)
  1. BUPIVACAINE HCL [Suspect]
     Active Substance: BUPIVACAINE HYDROCHLORIDE
     Dosage: 420 MG, SINGLE
     Route: 058
  2. HYDROMORPHONE HYDROCHLORIDE. [Suspect]
     Active Substance: HYDROMORPHONE HYDROCHLORIDE
     Dosage: 60 MG, UNK
     Route: 058

REACTIONS (7)
  - Bradycardia [Recovered/Resolved]
  - Generalised tonic-clonic seizure [Recovered/Resolved]
  - Hypotension [Recovered/Resolved]
  - Incorrect route of drug administration [Recovered/Resolved]
  - Respiratory rate decreased [Recovered/Resolved]
  - Mental status changes [Recovered/Resolved]
  - Cardiotoxicity [Recovered/Resolved]
